FAERS Safety Report 21559237 (Version 1)
Quarter: 2022Q4

REPORT INFORMATION
  Report Type: Report from Study
  Country: CZ (occurrence: CZ)
  Receive Date: 20221107
  Receipt Date: 20221107
  Transmission Date: 20230113
  Serious: Yes (Hospitalization)
  Sender: FDA-Public Use
  Company Number: CZ-ABBVIE-4189067

PATIENT
  Age: 77 Year
  Sex: Female

DRUGS (1)
  1. RINVOQ [Suspect]
     Active Substance: UPADACITINIB
     Indication: Rheumatoid arthritis
     Dates: start: 20220718, end: 20221018

REACTIONS (4)
  - Pyrexia [Unknown]
  - Arthropathy [Unknown]
  - Herpes zoster [Unknown]
  - Erysipelas [Unknown]

NARRATIVE: CASE EVENT DATE: 20221018
